FAERS Safety Report 8966198 (Version 1)
Quarter: 2012Q4

REPORT INFORMATION
  Report Type: 
  Country: US (occurrence: US)
  Receive Date: 20121217
  Receipt Date: 20121217
  Transmission Date: 20130627
  Serious: No
  Sender: FDA-Public Use
  Company Number: US-PFIZER INC-2012315701

PATIENT
  Age: 56 Year
  Sex: Female
  Weight: 79.37 kg

DRUGS (2)
  1. EFFEXOR XR [Suspect]
     Indication: HOT FLASHES
     Dosage: 75 mg, 1x/day
     Route: 048
     Dates: start: 200308, end: 20121210
  2. PROTONIX [Concomitant]
     Dosage: UNK

REACTIONS (4)
  - Depression [Not Recovered/Not Resolved]
  - Emotional disorder [Not Recovered/Not Resolved]
  - Frustration [Not Recovered/Not Resolved]
  - Feeling hot [Not Recovered/Not Resolved]
